FAERS Safety Report 13367411 (Version 1)
Quarter: 2017Q1

REPORT INFORMATION
  Report Type: Report from Study
  Country: US (occurrence: US)
  Receive Date: 20170324
  Receipt Date: 20170324
  Transmission Date: 20170429
  Serious: Yes (Hospitalization, Other)
  Sender: FDA-Public Use
  Company Number: US-BIOGEN-2014BI124078

PATIENT
  Age: 63 Year
  Sex: Female

DRUGS (3)
  1. AVONEX [Suspect]
     Active Substance: INTERFERON BETA-1A
     Indication: MULTIPLE SCLEROSIS
     Route: 030
     Dates: start: 20031230, end: 20070206
  2. AVONEX [Suspect]
     Active Substance: INTERFERON BETA-1A
     Route: 030
     Dates: start: 20070307, end: 20141103
  3. AVONEX [Suspect]
     Active Substance: INTERFERON BETA-1A
     Route: 030
     Dates: start: 201411, end: 201510

REACTIONS (7)
  - Fibromyalgia [Not Recovered/Not Resolved]
  - Procedural pneumothorax [Recovered/Resolved]
  - Lung disorder [Recovered/Resolved]
  - Pneumothorax [Recovered/Resolved]
  - Pneumonia [Recovered/Resolved]
  - Diagnostic aspiration [Recovered/Resolved]
  - Emphysema [Not Recovered/Not Resolved]

NARRATIVE: CASE EVENT DATE: 2006
